FAERS Safety Report 6032765-X (Version None)
Quarter: 2009Q1

REPORT INFORMATION
  Report Type: 
  Country: None (occurrence: None)
  Receive Date: 20090109
  Receipt Date: 20071029
  Transmission Date: 20090719
  Serious: Yes (Death, Disabling, Other)
  Sender: FDA-Public Use
  Company Number: RU-JNJFOC-20070102235

PATIENT
  Age: 81 Year
  Sex: Female

DRUGS (8)
  1. LEVOFLOXACIN [Suspect]
     Indication: PNEUMONIA
     Route: 048
     Dates: start: 20061221, end: 20070103
  2. ASPARCAM [Concomitant]
     Indication: ATRIAL FIBRILLATION
     Route: 048
  3. VEROSPIRON [Concomitant]
     Indication: CARDIAC FAILURE
     Route: 048
  4. ASPIRIN [Concomitant]
     Indication: ANGINA PECTORIS
     Route: 048
  5. NITROSORBID [Concomitant]
     Indication: ANGINA PECTORIS
     Route: 048
  6. LASIX [Concomitant]
     Indication: CARDIAC FAILURE
     Route: 048
  7. ENOX [Concomitant]
     Indication: ANGINA PECTORIS
     Route: 048
  8. DIGOXIN [Concomitant]
     Indication: ANGINA PECTORIS
     Route: 048

REACTIONS (1)
  - CEREBROVASCULAR ACCIDENT [None]
